FAERS Safety Report 4487887-1 (Version None)
Quarter: 2004Q4

REPORT INFORMATION
  Report Type: 
  Country: None (occurrence: None)
  Receive Date: 20041025
  Receipt Date: 20041007
  Transmission Date: 20050328
  Serious: Yes (Hospitalization, Congenital Anomaly)
  Sender: FDA-Public Use
  Company Number: DSA_24883_2004

PATIENT

DRUGS (10)
  1. ATIVAN [Suspect]
     Dosage: 0.5 MG QID TRAN-P
     Route: 064
     Dates: start: 20031201, end: 20040101
  2. ATIVAN [Suspect]
     Dosage: 1 MG QID, TRAN-P
     Route: 064
     Dates: start: 20040101, end: 20040101
  3. EFFEXOR XR [Suspect]
     Dosage: 450 MG QD TRAN-P
     Route: 064
     Dates: start: 20031201
  4. ABILIFY [Suspect]
     Dosage: 20 MG QHS, TRAN-P
     Route: 064
     Dates: start: 20031210, end: 20031229
  5. ABILIFY [Suspect]
     Dosage: 15 MG QD TRAN-P
     Route: 064
     Dates: start: 20031201, end: 20031209
  6. AMBIEN [Suspect]
     Dosage: 20 MG QD TRAN-P
     Route: 064
     Dates: start: 20031201, end: 20031229
  7. GABITRIL [Suspect]
     Dosage: 12 MG QD, TRAN-P
     Route: 064
     Dates: start: 20031201, end: 20031229
  8. KLONOPIN [Suspect]
     Dosage: 2 MG TRAN-P
     Route: 064
     Dates: start: 20031201, end: 20031229
  9. REMERON [Suspect]
     Dosage: 45 MG QD TRAN-P
     Route: 064
     Dates: start: 20031201, end: 20040222
  10. REMERON [Suspect]
     Dosage: 60 MG QHS, TRAN-P
     Route: 064
     Dates: start: 20040223

REACTIONS (5)
  - CAESAREAN SECTION [None]
  - CONGENITAL ECTOPIC BLADDER [None]
  - DRUG EXPOSURE DURING PREGNANCY [None]
  - MENINGOMYELOCELE [None]
  - PREMATURE BABY [None]
